FAERS Safety Report 18824888 (Version 6)
Quarter: 2021Q3

REPORT INFORMATION
  Report Type: Spontaneous
  Country: US (occurrence: US)
  Receive Date: 20210202
  Receipt Date: 20210812
  Transmission Date: 20211014
  Serious: No
  Sender: FDA-Public Use
  Company Number: US-PFIZER INC-2021042394

PATIENT
  Age: 58 Year
  Sex: Female

DRUGS (1)
  1. LYRICA [Suspect]
     Active Substance: PREGABALIN
     Indication: MULTIPLE SCLEROSIS
     Dosage: 100 MG, 3X/DAY (SIG ONE TAB PO TID (THREE TIMES A DAY) 3 MONTH SUPPLY)
     Route: 048

REACTIONS (4)
  - Illness [Unknown]
  - Off label use [Unknown]
  - Pain [Unknown]
  - Confusional state [Unknown]
